FAERS Safety Report 7719523-2 (Version None)
Quarter: 2011Q3

REPORT INFORMATION
  Report Type: 
  Country: None (occurrence: None)
  Receive Date: 20110830
  Receipt Date: 20110823
  Transmission Date: 20111222
  Serious: Yes (Other)
  Sender: FDA-Public Use
  Company Number: PHHY2011NZ75466

PATIENT
  Age: 76 Year
  Sex: Female

DRUGS (3)
  1. METOPROLOL TARTRATE [Concomitant]
     Dosage: 47.5 MG, UNK
  2. DONEPEZIL HCL [Suspect]
     Dosage: 10 MG, UNK
  3. DONEPEZIL HCL [Suspect]
     Dosage: 5 MG, UNK

REACTIONS (16)
  - DYSPHORIA [None]
  - JUDGEMENT IMPAIRED [None]
  - DISTURBANCE IN ATTENTION [None]
  - FRUSTRATION [None]
  - BIPOLAR DISORDER [None]
  - HYPOMANIA [None]
  - OVERCONFIDENCE [None]
  - PSYCHOMOTOR HYPERACTIVITY [None]
  - INSOMNIA [None]
  - THINKING ABNORMAL [None]
  - LOGORRHOEA [None]
  - IRRITABILITY [None]
  - DEPRESSED MOOD [None]
  - ANHEDONIA [None]
  - INAPPROPRIATE AFFECT [None]
  - DEPRESSION [None]
